FAERS Safety Report 18960858 (Version 2)
Quarter: 2021Q1

REPORT INFORMATION
  Report Type: Spontaneous
  Country: US (occurrence: US)
  Receive Date: 20210303
  Receipt Date: 20210318
  Transmission Date: 20210420
  Serious: No
  Sender: FDA-Public Use
  Company Number: US-ASTRAZENECA-2021A098893

PATIENT
  Age: 19754 Day
  Sex: Female
  Weight: 123.8 kg

DRUGS (1)
  1. BYDUREON BCISE [Suspect]
     Active Substance: EXENATIDE
     Indication: BLOOD GLUCOSE INCREASED
     Route: 058
     Dates: start: 20210210

REACTIONS (8)
  - Device issue [Unknown]
  - Incorrect dose administered by device [Unknown]
  - Injection site pain [Unknown]
  - Wrong technique in device usage process [Unknown]
  - Choking [Unknown]
  - Injection site pruritus [Unknown]
  - Device leakage [Unknown]
  - Injection site mass [Unknown]

NARRATIVE: CASE EVENT DATE: 20210226
